FAERS Safety Report 13908408 (Version 1)
Quarter: 2017Q3

REPORT INFORMATION
  Report Type: Spontaneous
  Country: US (occurrence: US)
  Receive Date: 20170826
  Receipt Date: 20170826
  Transmission Date: 20171127
  Serious: Yes (Other)
  Sender: FDA-Public Use
  Company Number: PHEH2017US026748

PATIENT
  Sex: Male

DRUGS (2)
  1. AFINITOR DISPERZ [Suspect]
     Active Substance: EVEROLIMUS
     Indication: RENAL CELL CARCINOMA
     Dosage: UNK
     Route: 065
  2. LENVATINIB [Suspect]
     Active Substance: LENVATINIB
     Indication: RENAL CELL CARCINOMA
     Dosage: 10 MG, QD
     Route: 048
     Dates: start: 20170721

REACTIONS (2)
  - Rash pruritic [Not Recovered/Not Resolved]
  - Renal impairment [Unknown]
